FAERS Safety Report 25475328 (Version 1)
Quarter: 2025Q2

REPORT INFORMATION
  Report Type: Spontaneous
  Country: US (occurrence: US)
  Receive Date: 20250624
  Receipt Date: 20250624
  Transmission Date: 20250716
  Serious: No
  Sender: ABBVIE
  Company Number: US-ABBVIE-6341809

PATIENT
  Age: 37 Year
  Sex: Female
  Weight: 131.54 kg

DRUGS (6)
  1. HUMIRA [Suspect]
     Active Substance: ADALIMUMAB
     Indication: Crohn^s disease
     Dosage: FORM STRENGTH: 40?FORM STRENGTH UNITS: MILLIGRAM?START DATE TEXT: 10 YEARS AGO?STOP DATE TEXT: ON...
     Route: 058
  2. HUMIRA [Suspect]
     Active Substance: ADALIMUMAB
     Dosage: FORM STRENGTH: 40?FORM STRENGTH UNITS: MILLIGRAM?START DATE TEXT: 10 YEARS AGO?STOP DATE TEXT: ON...
     Route: 058
  3. PANTOPRAZOLE [Concomitant]
     Active Substance: PANTOPRAZOLE
     Indication: Gastrooesophageal reflux disease
  4. CITALOPRAM [Concomitant]
     Active Substance: CITALOPRAM
     Indication: Depression
  5. ZEPBOUND [Concomitant]
     Active Substance: TIRZEPATIDE
     Indication: Weight decreased
  6. INCASSIA [Concomitant]
     Active Substance: NORETHINDRONE
     Indication: Contraception

REACTIONS (1)
  - Product temperature excursion issue [Not Recovered/Not Resolved]

NARRATIVE: CASE EVENT DATE: 20250619
